FAERS Safety Report 24682993 (Version 2)
Quarter: 2024Q4

REPORT INFORMATION
  Report Type: Report from Study
  Country: CA (occurrence: CA)
  Receive Date: 20241201
  Receipt Date: 20241201
  Transmission Date: 20250115
  Serious: Yes (Other)
  Sender: ALEXION PHARMACEUTICALS
  Company Number: CA-AstraZeneca-CH-00754087A

PATIENT

DRUGS (8)
  1. OSIMERTINIB [Suspect]
     Active Substance: OSIMERTINIB
     Indication: Non-small cell lung cancer metastatic
     Dosage: 80 MILLIGRAM, QD
  2. OSIMERTINIB [Suspect]
     Active Substance: OSIMERTINIB
     Dosage: 80 MILLIGRAM, QD
  3. OSIMERTINIB [Suspect]
     Active Substance: OSIMERTINIB
     Dosage: 80 MILLIGRAM, QD
  4. OSIMERTINIB [Suspect]
     Active Substance: OSIMERTINIB
     Dosage: 80 MILLIGRAM, QD
  5. CARBOPLATIN [Concomitant]
     Active Substance: CARBOPLATIN
     Dosage: UNK
  6. CARBOPLATIN [Concomitant]
     Active Substance: CARBOPLATIN
     Dosage: UNK
     Route: 065
  7. PEMETREXED [Concomitant]
     Active Substance: PEMETREXED
  8. PEMETREXED [Concomitant]
     Active Substance: PEMETREXED
     Route: 065

REACTIONS (6)
  - Myelosuppression [Unknown]
  - Oral pain [Unknown]
  - Dry skin [Unknown]
  - Dry skin [Unknown]
  - Nausea [Unknown]
  - Vomiting [Unknown]
